FAERS Safety Report 16540928 (Version 2)
Quarter: 2019Q3

REPORT INFORMATION
  Report Type: Spontaneous
  Country: US (occurrence: US)
  Receive Date: 20190708
  Receipt Date: 20190729
  Transmission Date: 20191004
  Serious: No
  Sender: FDA-Public Use
  Company Number: US-SA-2019SA183349

PATIENT
  Age: 60 Year
  Sex: Female

DRUGS (12)
  1. SERNIVO [Concomitant]
     Active Substance: BETAMETHASONE DIPROPIONATE
  2. MONTELUKAST SODIUM. [Concomitant]
     Active Substance: MONTELUKAST SODIUM
  3. MULTIVITAMINS [VITAMINS NOS] [Concomitant]
     Active Substance: VITAMINS
  4. BETAMETHASONE DIPROPIONATE. [Concomitant]
     Active Substance: BETAMETHASONE DIPROPIONATE
  5. HYDROXYZINE [Concomitant]
     Active Substance: HYDROXYZINE HYDROCHLORIDE
  6. TRIAMCINOLONA ACETONIDO [Concomitant]
  7. DUPIXENT [Suspect]
     Active Substance: DUPILUMAB
     Indication: DERMATITIS ATOPIC
  8. ADVIL [IBUPROFEN] [Concomitant]
     Active Substance: IBUPROFEN
  9. EXCEDRIN EXTRA STRENGTH [Concomitant]
     Active Substance: ACETAMINOPHEN\ASPIRIN\CAFFEINE
  10. PROMETHAZINE [Concomitant]
     Active Substance: PROMETHAZINE HYDROCHLORIDE
  11. DUPIXENT [Suspect]
     Active Substance: DUPILUMAB
     Indication: ALLERGY TO CHEMICALS
     Dosage: 300 MG, QOW
     Route: 058
     Dates: start: 20190601
  12. VARENICLINE [Suspect]
     Active Substance: VARENICLINE

REACTIONS (12)
  - Pruritus [Unknown]
  - Dental restoration failure [Unknown]
  - Headache [Unknown]
  - Diarrhoea [Unknown]
  - Depressed mood [Unknown]
  - Feeling abnormal [Unknown]
  - Nightmare [Unknown]
  - Influenza like illness [Unknown]
  - Chills [Unknown]
  - Pyrexia [Unknown]
  - Alopecia [Unknown]
  - Product use in unapproved indication [Unknown]

NARRATIVE: CASE EVENT DATE: 20190715
